FAERS Safety Report 15327566 (Version 2)
Quarter: 2018Q3

REPORT INFORMATION
  Report Type: Report from Study
  Country: US (occurrence: US)
  Receive Date: 20180828
  Receipt Date: 20180906
  Transmission Date: 20181010
  Serious: Yes (Hospitalization)
  Sender: FDA-Public Use
  Company Number: US-ACTELION-A-US2018-177790

PATIENT
  Age: 70 Year
  Sex: Female

DRUGS (38)
  1. LEVOTHYROXIN [Concomitant]
     Active Substance: LEVOTHYROXINE
     Dosage: 125 MCG, UNK
     Dates: start: 20161130
  2. METHENAMINE [Concomitant]
     Active Substance: METHENAMINE
     Dosage: 500 MG, UNK
     Dates: start: 20161130
  3. BIOTIN [Concomitant]
     Active Substance: BIOTIN
     Dosage: 1000 MCG, QD
  4. DIPHENHYDRAMINE CITRATE W/PARACETAMOL [Concomitant]
     Active Substance: ACETAMINOPHEN\DIPHENHYDRAMINE CITRATE
     Dosage: 25 MG, UNK
  5. ZOFRAN [Concomitant]
     Active Substance: ONDANSETRON HYDROCHLORIDE
     Dosage: 4 MG, UNK
  6. SUCRALFATE. [Concomitant]
     Active Substance: SUCRALFATE
     Dosage: 1 G, QPM
  7. TORSEMIDE. [Concomitant]
     Active Substance: TORSEMIDE
     Dosage: 20 MG, BID
  8. TRAMADOL. [Concomitant]
     Active Substance: TRAMADOL
     Dosage: 50 MG, Q6HRS
  9. ZOLPIDEM [Concomitant]
     Active Substance: ZOLPIDEM\ZOLPIDEM TARTRATE
  10. POTASSIUM [Concomitant]
     Active Substance: POTASSIUM
     Dosage: 99 MG, UNK
     Dates: start: 20161130
  11. PRILOSEC [Concomitant]
     Active Substance: OMEPRAZOLE MAGNESIUM
     Dosage: 20 MG, UNK
     Dates: start: 20161130
  12. SPIRONOLACTON [Concomitant]
     Active Substance: SPIRONOLACTONE
     Dosage: 25 MG, UNK
     Dates: start: 20161130
  13. LOPERAMIDE [Concomitant]
     Active Substance: LOPERAMIDE
     Dosage: 2 MG, QID
  14. ZAROXOLYN [Concomitant]
     Active Substance: METOLAZONE
  15. WARFARIN [Concomitant]
     Active Substance: WARFARIN
     Dosage: 2 MG, UNK
     Dates: start: 20161130
  16. LIPITOR [Concomitant]
     Active Substance: ATORVASTATIN CALCIUM
     Dosage: 40 MG, QD
  17. ZOLOFT [Concomitant]
     Active Substance: SERTRALINE HYDROCHLORIDE
     Dosage: 100 MG, UNK
     Dates: start: 20161130
  18. TRACLEER [Suspect]
     Active Substance: BOSENTAN
     Indication: PULMONARY ARTERIAL HYPERTENSION
     Dosage: 125 MG, BID
     Route: 048
     Dates: start: 20090225
  19. CELLCEPT [Suspect]
     Active Substance: MYCOPHENOLATE MOFETIL\MYCOPHENOLATE MOFETIL HYDROCHLORIDE
     Indication: PRODUCT USED FOR UNKNOWN INDICATION
     Route: 065
  20. MULTIVITAMIN AND MINERAL SUPPLEMENT [Concomitant]
     Active Substance: MINERALS\VITAMINS
  21. DUONEB [Concomitant]
     Active Substance: ALBUTEROL SULFATE\IPRATROPIUM BROMIDE
     Dosage: 3 UNK, QID
  22. METHENAMINE [Concomitant]
     Active Substance: METHENAMINE
     Dosage: 250 MG, BID
  23. POTASSIUM CHLORIDE. [Concomitant]
     Active Substance: POTASSIUM CHLORIDE
  24. CLOBETASOL [Concomitant]
     Active Substance: CLOBETASOL
  25. OMEPRAZOLE. [Concomitant]
     Active Substance: OMEPRAZOLE
     Dosage: 20 MG, BID
  26. LEVOTHYROXIN [Concomitant]
     Active Substance: LEVOTHYROXINE
     Dosage: 175 MCG, QD
  27. LIPITOR [Concomitant]
     Active Substance: ATORVASTATIN CALCIUM
     Dosage: 10 MG, UNK
     Dates: start: 20161130
  28. LANTUS [Concomitant]
     Active Substance: INSULIN GLARGINE
     Dosage: 100 ML, UNK
     Dates: start: 20161130
  29. PREDNISONE. [Concomitant]
     Active Substance: PREDNISONE
     Dosage: 5 MG, UNK
     Dates: start: 20161130
  30. VITAMIN C [Concomitant]
     Active Substance: ASCORBIC ACID
     Dosage: 500 MG, BID
  31. ASPIRIN. [Concomitant]
     Active Substance: ASPIRIN
     Dosage: 81 MG, QD
  32. CHOLECALCIFEROL [Concomitant]
     Active Substance: CHOLECALCIFEROL
     Dosage: 1000 U, QD
  33. ROBAXIN [Concomitant]
     Active Substance: METHOCARBAMOL
     Dosage: 750 MG, QPM
  34. REMODULIN [Concomitant]
     Active Substance: TREPROSTINIL
     Dosage: 5 UNK, UNK
     Dates: start: 20170629
  35. OXYGEN. [Concomitant]
     Active Substance: OXYGEN
  36. VITAMIN B COMPLEX NOS [Concomitant]
     Active Substance: CYANOCOBALAMIN\PYRIDOXINE HYDROCHLORIDE\RIBOFLAVIN\SODIUM PANTOTHENATE\THIAMINE HYDROCHLORIDE\VITAMIN B COMPLEX
  37. OXYCODONE [Concomitant]
     Active Substance: OXYCODONE
     Dosage: 5 MG, UNK
  38. PROPYLENE GLYCOL [Concomitant]
     Active Substance: PROPYLENE GLYCOL

REACTIONS (15)
  - Drug dose omission [Recovered/Resolved]
  - Hypoxia [Recovered/Resolved]
  - Bronchiectasis [Recovered/Resolved]
  - Dyspnoea [Recovered/Resolved]
  - Nausea [Recovered/Resolved]
  - Asthenia [Recovered/Resolved]
  - Pleural effusion [Recovered/Resolved]
  - Pulmonary oedema [Recovered/Resolved]
  - Acute respiratory failure [Recovered/Resolved]
  - Hypoglycaemia [Recovered/Resolved]
  - Rib fracture [Recovered/Resolved]
  - Head injury [Recovered/Resolved]
  - Pain [Recovered/Resolved]
  - Fall [Recovered/Resolved]
  - Computerised tomogram thorax abnormal [Recovered/Resolved]

NARRATIVE: CASE EVENT DATE: 20180725
